FAERS Safety Report 4431608-5 (Version None)
Quarter: 2004Q3

REPORT INFORMATION
  Report Type: 
  Country: None (occurrence: None)
  Receive Date: 20040726
  Receipt Date: 20040409
  Transmission Date: 20050211
  Serious: No
  Sender: FDA-Public Use
  Company Number: USA040464529

PATIENT
  Age: 84 Year
  Sex: Female
  Weight: 45 kg

DRUGS (6)
  1. FORTEO [Suspect]
     Indication: OSTEOPOROSIS
     Dosage: 20 UG/1 DAY
     Dates: start: 20040301
  2. OXYCONTIN [Concomitant]
  3. PROCARDIA [Concomitant]
  4. FOSAMAX [Concomitant]
  5. AMITRIPTYLINE HCL [Concomitant]
  6. NEURONTIN [Concomitant]

REACTIONS (4)
  - ANXIETY [None]
  - CHEST PAIN [None]
  - DEHYDRATION [None]
  - INJECTION SITE REACTION [None]
